FAERS Safety Report 14805667 (Version 3)
Quarter: 2018Q2

REPORT INFORMATION
  Report Type: Spontaneous
  Country: FR (occurrence: FR)
  Receive Date: 20180425
  Receipt Date: 20180608
  Transmission Date: 20180711
  Serious: Yes (Hospitalization, Other)
  Sender: FDA-Public Use
  Company Number: FR-JNJFOC-20180419339

PATIENT
  Age: 42 Year
  Sex: Male
  Weight: 70 kg

DRUGS (3)
  1. TERCIAN [Concomitant]
     Active Substance: CYAMEMAZINE
     Indication: SEDATION
     Dosage: IN EVENING
     Route: 048
  2. TEMESTA (LORAZEPAM) [Concomitant]
     Active Substance: LORAZEPAM
     Route: 065
  3. TREVICTA [Suspect]
     Active Substance: PALIPERIDONE PALMITATE
     Indication: SCHIZOPHRENIA
     Route: 030
     Dates: start: 20180126, end: 201804

REACTIONS (2)
  - Suicidal ideation [Unknown]
  - Brugada syndrome [Recovered/Resolved]

NARRATIVE: CASE EVENT DATE: 20180414
